FAERS Safety Report 24693575 (Version 1)
Quarter: 2024Q4

REPORT INFORMATION
  Report Type: Spontaneous
  Country: CN (occurrence: CN)
  Receive Date: 20241204
  Receipt Date: 20241204
  Transmission Date: 20250115
  Serious: Yes (Other)
  Sender: STRIDES
  Company Number: CN-STRIDES ARCOLAB LIMITED-2024SP015982

PATIENT
  Age: 29 Year
  Sex: Female

DRUGS (18)
  1. PREDNISOLONE [Suspect]
     Active Substance: PREDNISOLONE
     Indication: Polyarteritis nodosa
     Dosage: 30 MILLIGRAM, QD
     Route: 065
  2. PREDNISOLONE [Suspect]
     Active Substance: PREDNISOLONE
     Dosage: 5 MILLIGRAM, QOD
     Route: 065
  3. PREDNISOLONE [Suspect]
     Active Substance: PREDNISOLONE
     Dosage: 15 MILLIGRAM, QD
     Route: 065
  4. PREDNISOLONE [Suspect]
     Active Substance: PREDNISOLONE
     Dosage: 30 MILLIGRAM, QD
     Route: 065
  5. PREDNISOLONE [Suspect]
     Active Substance: PREDNISOLONE
     Dosage: 15 MILLIGRAM, QD
     Route: 065
  6. PREDNISOLONE [Suspect]
     Active Substance: PREDNISOLONE
     Dosage: 7.5 MILLIGRAM, QD (DOSE WAS TAPERED)
     Route: 065
  7. PREDNISOLONE [Suspect]
     Active Substance: PREDNISOLONE
     Dosage: 10 MILLIGRAM, QOD
     Route: 065
  8. MYCOPHENOLATE MOFETIL [Suspect]
     Active Substance: MYCOPHENOLATE MOFETIL
     Indication: Polyarteritis nodosa
     Dosage: 0.5 GRAM, BID
     Route: 065
  9. DOXYCYCLINE [Suspect]
     Active Substance: DOXYCYCLINE
     Indication: Polyarteritis nodosa
     Dosage: UNK
     Route: 065
  10. METHOTREXATE [Suspect]
     Active Substance: METHOTREXATE
     Indication: Polyarteritis nodosa
     Dosage: 10 MILLIGRAM, ONCE A WEEK
     Route: 065
  11. HYDROXYCHLOROQUINE [Suspect]
     Active Substance: HYDROXYCHLOROQUINE
     Indication: Polyarteritis nodosa
     Dosage: UNK
     Route: 065
  12. BARICITINIB [Suspect]
     Active Substance: BARICITINIB
     Indication: Polyarteritis nodosa
     Dosage: 4 MILLIGRAM, QD
     Route: 065
  13. BARICITINIB [Suspect]
     Active Substance: BARICITINIB
     Dosage: 2 MILLIGRAM, QD
     Route: 065
  14. CYCLOPHOSPHAMIDE [Suspect]
     Active Substance: CYCLOPHOSPHAMIDE
     Indication: Polyarteritis nodosa
     Dosage: 0.8 MILLIGRAM, ONCE A MONTH
     Route: 065
  15. TOFACITINIB [Suspect]
     Active Substance: TOFACITINIB
     Indication: Polyarteritis nodosa
     Dosage: 5 MILLIGRAM, BID
     Route: 065
  16. TACROLIMUS [Concomitant]
     Active Substance: TACROLIMUS
     Indication: Polyarteritis nodosa
     Dosage: 1 MILLIGRAM, BID
     Route: 065
  17. LEFLUNOMIDE [Concomitant]
     Active Substance: LEFLUNOMIDE
     Indication: Polyarteritis nodosa
     Dosage: 20 MILLIGRAM, QD
     Route: 065
  18. THALIDOMIDE [Concomitant]
     Active Substance: THALIDOMIDE
     Indication: Polyarteritis nodosa
     Dosage: 50 MILLIGRAM, QD
     Route: 065

REACTIONS (4)
  - Blood triglycerides increased [Unknown]
  - Drug ineffective [Unknown]
  - Therapy partial responder [Unknown]
  - Off label use [Unknown]
